FAERS Safety Report 5286519-2 (Version None)
Quarter: 2007Q2

REPORT INFORMATION
  Report Type: 
  Country: None (occurrence: None)
  Receive Date: 20070404
  Receipt Date: 20070328
  Transmission Date: 20071010
  Serious: Yes (Death)
  Sender: FDA-Public Use
  Company Number: ES-SANOFI-SYNTHELABO-A01200703361

PATIENT
  Age: 50 Year
  Sex: Male

DRUGS (3)
  1. FOLINIC ACID [Concomitant]
     Route: 065
  2. FLUOROURACIL [Concomitant]
     Route: 065
  3. ELOXATIN [Suspect]
     Indication: METASTATIC NEOPLASM
     Dosage: UNK
     Route: 042
     Dates: start: 20070328, end: 20070328

REACTIONS (2)
  - CARDIO-RESPIRATORY ARREST [None]
  - HYPOAESTHESIA ORAL [None]
